FAERS Safety Report 25986868 (Version 1)
Quarter: 2025Q4

REPORT INFORMATION
  Report Type: Spontaneous
  Country: BR (occurrence: BR)
  Receive Date: 20251102
  Receipt Date: 20251102
  Transmission Date: 20260118
  Serious: Yes (Other)
  Sender: ORGANON
  Company Number: BR-ORGANON-O2510BRA002718

PATIENT
  Sex: Female

DRUGS (1)
  1. ETONOGESTREL [Suspect]
     Active Substance: ETONOGESTREL
     Indication: Contraception
     Dosage: 1 IMPLANT

REACTIONS (2)
  - Dermatitis allergic [Not Recovered/Not Resolved]
  - Adverse event [Not Recovered/Not Resolved]
